FAERS Safety Report 14707747 (Version 1)
Quarter: 2018Q2

REPORT INFORMATION
  Report Type: Spontaneous
  Country: US (occurrence: US)
  Receive Date: 20180403
  Receipt Date: 20180403
  Transmission Date: 20180711
  Serious: Yes (Hospitalization, Other)
  Sender: FDA-Public Use
  Company Number: US-AUROBINDO-AUR-APL-2018-017894

PATIENT
  Age: 61 Year
  Sex: Male

DRUGS (3)
  1. OPDIVO [Suspect]
     Active Substance: NIVOLUMAB
     Indication: PRODUCT USED FOR UNKNOWN INDICATION
     Route: 065
  2. PREDNISONE. [Suspect]
     Active Substance: PREDNISONE
     Indication: PROPHYLAXIS
  3. YERVOY [Suspect]
     Active Substance: IPILIMUMAB
     Indication: PRODUCT USED FOR UNKNOWN INDICATION
     Route: 065

REACTIONS (9)
  - Dry mouth [Unknown]
  - Tachypnoea [Unknown]
  - Fatigue [Unknown]
  - Diabetic ketoacidosis [Unknown]
  - Condition aggravated [Unknown]
  - Hypotension [Unknown]
  - Nausea [Unknown]
  - Diabetes mellitus [Unknown]
  - Tachycardia [Unknown]
